FAERS Safety Report 6703559-4 (Version None)
Quarter: 2010Q2

REPORT INFORMATION
  Report Type: 
  Country: None (occurrence: None)
  Receive Date: 20100430
  Receipt Date: 20100419
  Transmission Date: 20101027
  Serious: Yes (Hospitalization, Other)
  Sender: FDA-Public Use
  Company Number: US-PFIZER INC-2010050013

PATIENT
  Sex: Male
  Weight: 143 kg

DRUGS (10)
  1. GEODON [Suspect]
     Dosage: 40 MG, 1X/DAY
     Route: 048
     Dates: start: 20091223
  2. CARAFATE [Suspect]
     Dosage: 1 MG, EVERY 6 HOURS
  3. DICYCLOMINE [Suspect]
     Dosage: 10 MG, 2X/DAY
  4. LITHIUM [Concomitant]
     Dosage: 1800 MG, DAILY
  5. AMBIEN [Concomitant]
     Dosage: 10 MG, UNK
  6. CITALOPRAM [Concomitant]
     Dosage: 40 MG, UNK
  7. LORAZEPAM [Concomitant]
     Indication: ANXIETY
     Dosage: 1 MG, AS NEEDED
  8. NEXIUM [Concomitant]
     Dosage: 40 MG, UNK
  9. SYNTHROID [Concomitant]
     Dosage: 125 I?G, UNK
  10. GLUCOPHAGE [Concomitant]
     Dosage: 1000 MG, UNK

REACTIONS (4)
  - ANXIETY [None]
  - CHEST PAIN [None]
  - CHOLELITHIASIS [None]
  - WEIGHT DECREASED [None]
